FAERS Safety Report 11255771 (Version 1)
Quarter: 2015Q3

REPORT INFORMATION
  Report Type: Spontaneous
  Country: CN (occurrence: CN)
  Receive Date: 20150709
  Receipt Date: 20150709
  Transmission Date: 20151125
  Serious: Yes (Other)
  Sender: FDA-Public Use
  Company Number: CN-CIPLA LTD.-2015CN05619

PATIENT

DRUGS (5)
  1. IODIZED OIL [Suspect]
     Active Substance: IODIZED OIL
     Indication: METASTASES TO LIVER
     Dosage: 8 ML, UNK
  2. NON?IONIC CONTRAST MATERIAL [Suspect]
     Active Substance: UNSPECIFIED INGREDIENT
     Indication: METASTASES TO LIVER
     Dosage: 5 ML, UNK
  3. EPIRUBICIN [Suspect]
     Active Substance: EPIRUBICIN
     Indication: METASTASES TO LIVER
     Dosage: 60 MG, UNK
  4. FLOXURIDINE. [Suspect]
     Active Substance: FLOXURIDINE
     Indication: METASTASES TO LIVER
     Dosage: 1000 MG, UNK
  5. CISPLATIN. [Suspect]
     Active Substance: CISPLATIN
     Indication: METASTASES TO LIVER
     Dosage: 60 UNK, UNK

REACTIONS (1)
  - Immune thrombocytopenic purpura [None]
